FAERS Safety Report 8800515 (Version 4)
Quarter: 2012Q4

REPORT INFORMATION
  Report Type: 
  Country: JP (occurrence: JP)
  Receive Date: 20120921
  Receipt Date: 20121102
  Transmission Date: 20130627
  Serious: Yes (Death, Other)
  Sender: FDA-Public Use
  Company Number: JP-B.I. PHARMACEUTICALS,INC./RIDGEFIELD-2012-BP-22980NB

PATIENT
  Age: 90 Year
  Sex: Male
  Weight: 39 kg

DRUGS (8)
  1. PRAZAXA [Suspect]
     Indication: ANTICOAGULANT THERAPY
     Dosage: 220 mg
     Route: 048
     Dates: start: 20120813, end: 20120829
  2. BAYASPIRIN [Suspect]
     Indication: THROMBOSIS PROPHYLAXIS
     Dosage: 100 mg
     Route: 048
     Dates: start: 20120813, end: 20120829
  3. OLMETEC [Concomitant]
     Indication: HYPERTENSION
     Dosage: 20 mg
     Route: 048
     Dates: start: 20120808, end: 20120829
  4. DIART [Concomitant]
     Indication: POLYURIA
     Dosage: 60 mg
     Route: 048
     Dates: start: 20120811, end: 20120829
  5. ARICEPT [Concomitant]
     Indication: DEMENTIA
     Dosage: 5 mg
     Route: 048
     Dates: start: 20120813, end: 20120829
  6. TAKEPRON [Concomitant]
     Indication: GASTRIC DISORDER
     Dosage: 15 mg
     Route: 048
     Dates: start: 20120813, end: 20120829
  7. PARIET [Concomitant]
     Indication: GASTRIC DISORDER
     Dosage: 10 mg
     Route: 048
     Dates: start: 20120807, end: 20120829
  8. FERO-GRADUMET [Concomitant]
     Indication: MINERAL SUPPLEMENTATION
     Dosage: 105 mg
     Route: 048
     Dates: start: 20120807, end: 20120829

REACTIONS (3)
  - Shock haemorrhagic [Fatal]
  - Gastrointestinal haemorrhage [Fatal]
  - Melaena [Unknown]
